FAERS Safety Report 23406847 (Version 2)
Quarter: 2024Q1

REPORT INFORMATION
  Report Type: Report from Study
  Country: CN (occurrence: CN)
  Receive Date: 20240116
  Receipt Date: 20240124
  Transmission Date: 20240410
  Serious: No
  Sender: FDA-Public Use
  Company Number: CN-PFIZER INC-PV202400003350

PATIENT
  Age: 81 Year
  Sex: Male

DRUGS (38)
  1. NIRMATRELVIR\RITONAVIR [Suspect]
     Active Substance: NIRMATRELVIR\RITONAVIR
     Dosage: [NIRMATRELVIR 300 MG]/[RITONAVIR 100 MG], Q12H
     Dates: start: 20220516, end: 20220520
  2. NIRMATRELVIR\RITONAVIR [Suspect]
     Active Substance: NIRMATRELVIR\RITONAVIR
     Dosage: [NIRMATRELVIR 300 MG]/[RITONAVIR 100 MG], Q12H
     Dates: start: 20220523, end: 20220528
  3. ASPIRIN [Concomitant]
     Active Substance: ASPIRIN
     Indication: Cerebral infarction
     Dosage: UNK
     Route: 048
     Dates: start: 20220513, end: 20220605
  4. ROSUVASTATIN CALCIUM [Concomitant]
     Active Substance: ROSUVASTATIN CALCIUM
     Indication: Cerebral infarction
     Dosage: UNK
     Route: 048
     Dates: start: 20220513, end: 20220608
  5. NIFEDIPINE [Concomitant]
     Active Substance: NIFEDIPINE
     Indication: Hypertension
     Dosage: CONTROLLED-RELEASE
     Route: 048
     Dates: start: 20220513, end: 20220516
  6. SACUBITRIL\VALSARTAN [Concomitant]
     Active Substance: SACUBITRIL\VALSARTAN
     Indication: Cerebral haemorrhage
     Dosage: UNK
     Route: 048
     Dates: start: 20220513, end: 20220608
  7. SACUBITRIL\VALSARTAN [Concomitant]
     Active Substance: SACUBITRIL\VALSARTAN
     Indication: Hypertension
     Dosage: NASOGASTRIC
     Dates: start: 20220521, end: 20220522
  8. THYMALFASIN [Concomitant]
     Active Substance: THYMALFASIN
     Dosage: UNK
     Route: 058
     Dates: start: 20220519, end: 20220605
  9. CARBOHYDRATES\FATTY ACIDS\MINERALS\PROTEIN\VITAMINS [Concomitant]
     Active Substance: CARBOHYDRATES\FATTY ACIDS\MINERALS\PROTEIN\VITAMINS
     Indication: Nutritional supplementation
     Dosage: UNK
     Route: 048
     Dates: start: 20220520, end: 20220605
  10. SHEN SHUAI NING [Concomitant]
     Indication: Renal failure
     Dosage: UNK
     Route: 048
     Dates: start: 20220520, end: 20220606
  11. COMPOUND ALPHA KETOACID [Concomitant]
     Indication: Renal failure
     Dosage: UNK
     Route: 048
     Dates: start: 20220520, end: 20220605
  12. ALBUMIN HUMAN [Concomitant]
     Active Substance: ALBUMIN HUMAN
     Indication: Hypoproteinaemia
     Dosage: UNK
     Route: 042
     Dates: start: 20220520, end: 20220606
  13. CALCIUM CARBONATE AND VITAMIN D3 TABLETS (II) [Concomitant]
     Indication: Blood calcium decreased
     Dosage: NASOGASTRIC
     Dates: start: 20220520, end: 20220605
  14. CALCITRIOL [Concomitant]
     Active Substance: CALCITRIOL
     Indication: Blood calcium decreased
     Dosage: NASOGASTRIC
     Dates: start: 20220520, end: 20220605
  15. LEVOFLOXACIN [Concomitant]
     Active Substance: LEVOFLOXACIN
     Indication: Pneumonia
     Dosage: UNK
     Route: 042
     Dates: start: 20220522, end: 20220523
  16. ERYTHROPOIETIN [Concomitant]
     Active Substance: ERYTHROPOIETIN
     Indication: Anaemia
     Dosage: UNK
     Route: 058
     Dates: start: 20220521, end: 20220606
  17. AMBROXOL HYDROCHLORIDE [Concomitant]
     Active Substance: AMBROXOL HYDROCHLORIDE
     Indication: Productive cough
     Dosage: UNK
     Route: 042
     Dates: start: 20220523, end: 20220606
  18. HERBALS [Concomitant]
     Active Substance: HERBALS
     Indication: Cerebral infarction
     Dosage: UNK
     Route: 042
     Dates: start: 20220523, end: 20220529
  19. MOSAPRIDE CITRATE [Concomitant]
     Active Substance: MOSAPRIDE CITRATE
     Indication: Dyspepsia
     Dosage: NASOGASTRIC
     Dates: start: 20220523, end: 20220602
  20. MEROPENEM [Concomitant]
     Active Substance: MEROPENEM
     Indication: Pneumonia
     Dosage: UNK
     Route: 042
     Dates: start: 20220523, end: 20220531
  21. GLUTATHIONE [Concomitant]
     Active Substance: GLUTATHIONE
     Indication: Prophylaxis
     Dosage: UNK
     Route: 042
     Dates: start: 20220524, end: 20220526
  22. FRUCTOSE\GLYCERIN\SODIUM CHLORIDE [Concomitant]
     Active Substance: FRUCTOSE\GLYCERIN\SODIUM CHLORIDE
     Indication: Cerebral infarction
     Dosage: UNK
     Route: 042
     Dates: start: 20220525, end: 20220529
  23. LINEZOLID [Concomitant]
     Active Substance: LINEZOLID
     Indication: Pneumonia
     Dosage: NASOGASTRIC
     Dates: start: 20220526, end: 20220601
  24. METHYLPREDNISOLONE SODIUM SUCCINATE [Concomitant]
     Active Substance: METHYLPREDNISOLONE SODIUM SUCCINATE
     Indication: COVID-19
     Dosage: UNK
     Route: 042
     Dates: start: 20220528, end: 20220605
  25. OMEPRAZOLE SODIUM [Concomitant]
     Active Substance: OMEPRAZOLE SODIUM
     Indication: Prophylaxis
     Dosage: UNK
     Route: 042
     Dates: start: 20220528, end: 20220606
  26. CASPOFUNGIN ACETATE [Concomitant]
     Active Substance: CASPOFUNGIN ACETATE
     Indication: Pneumonia
     Dosage: UNK
     Route: 042
     Dates: start: 20220528, end: 20220601
  27. HUMAN IMMUNOGLOBULIN G [Concomitant]
     Active Substance: HUMAN IMMUNOGLOBULIN G
     Indication: Supplementation therapy
     Dosage: UNK
     Route: 042
     Dates: start: 20220529, end: 20220603
  28. SPIRONOLACTONE [Concomitant]
     Active Substance: SPIRONOLACTONE
     Indication: Polyuria
     Dosage: NASOGASTRLC
     Dates: start: 20220529, end: 20220530
  29. TOLVAPTAN [Concomitant]
     Active Substance: TOLVAPTAN
     Indication: Hyponatraemia
     Dosage: NASOGASTRIC
     Dates: start: 20220531, end: 20220606
  30. AMLODIPINE BESYLATE [Concomitant]
     Active Substance: AMLODIPINE BESYLATE
     Indication: Hypertension
     Dosage: NASOGASTRIC
     Route: 045
     Dates: start: 20220531, end: 20220603
  31. CEFOPERAZONE SODIUM\SULBACTAM SODIUM [Concomitant]
     Active Substance: CEFOPERAZONE SODIUM\SULBACTAM SODIUM
     Indication: Pneumonia
     Dosage: UNK
     Route: 042
     Dates: start: 20220531, end: 20220603
  32. LEVAMLODIPINE BESYLATE [Concomitant]
     Active Substance: LEVAMLODIPINE BESYLATE
     Indication: Hypertension
     Dosage: NASOGASTRIC
     Dates: start: 20220603, end: 20220606
  33. EMPAGLIFLOZIN [Concomitant]
     Active Substance: EMPAGLIFLOZIN
     Indication: Blood glucose increased
     Dosage: NASOGASTRIC
     Dates: start: 20220604, end: 20220604
  34. DAPAGLIFLOZIN [Concomitant]
     Active Substance: DAPAGLIFLOZIN
     Indication: Blood glucose increased
     Dosage: NASOGASTRIC
     Dates: start: 20220604, end: 20220606
  35. LACTULOSE [Concomitant]
     Active Substance: LACTULOSE
     Indication: Constipation
     Dosage: NASOGASTRIC
     Dates: start: 20220520
  36. ISOSORBIDE DINITRATE [Concomitant]
     Active Substance: ISOSORBIDE DINITRATE
     Indication: Renal failure
     Dosage: UNK
     Route: 042
     Dates: start: 20220520
  37. NICARDIPINE HYDROCHLORIDE [Concomitant]
     Active Substance: NICARDIPINE HYDROCHLORIDE
     Indication: Hypertension
     Dosage: UNK
     Route: 042
     Dates: start: 20220520
  38. FUROSEMIDE [Concomitant]
     Active Substance: FUROSEMIDE
     Indication: Polyuria
     Dosage: UNK
     Route: 042
     Dates: start: 20220520

REACTIONS (1)
  - Overdose [Unknown]
